FAERS Safety Report 6083146-4 (Version None)
Quarter: 2009Q1

REPORT INFORMATION
  Report Type: 
  Country: None (occurrence: None)
  Receive Date: 20090213
  Receipt Date: 20090213
  Transmission Date: 20090719
  Serious: Yes (Other)
  Sender: FDA-Public Use
  Company Number: None

PATIENT
  Sex: Male
  Weight: 82.1011 kg

DRUGS (3)
  1. CLONAZEPAM [Suspect]
     Indication: FATIGUE
     Dosage: 0.5MG ONE AND ONE HALF AT HS PO (SEE NOTES)
     Route: 048
     Dates: start: 20090119, end: 20090126
  2. CLONAZEPAM [Suspect]
     Indication: FIBROMYALGIA
     Dosage: 0.5MG ONE AND ONE HALF AT HS PO (SEE NOTES)
     Route: 048
     Dates: start: 20090119, end: 20090126
  3. CLONAZEPAM [Suspect]
     Indication: INSOMNIA
     Dosage: 0.5MG ONE AND ONE HALF AT HS PO (SEE NOTES)
     Route: 048
     Dates: start: 20090119, end: 20090126

REACTIONS (8)
  - ANXIETY [None]
  - DISORIENTATION [None]
  - DIZZINESS [None]
  - IMPAIRED WORK ABILITY [None]
  - INSOMNIA [None]
  - MENTAL DISORDER [None]
  - NAUSEA [None]
  - PRODUCT QUALITY ISSUE [None]
